FAERS Safety Report 23409761 (Version 3)
Quarter: 2025Q1

REPORT INFORMATION
  Report Type: Report from Study
  Country: US (occurrence: US)
  Receive Date: 20240117
  Receipt Date: 20250305
  Transmission Date: 20250409
  Serious: Yes (Other)
  Sender: MYLAN
  Company Number: US-MYLANLABS-2024M1005022

PATIENT
  Age: 78 Year
  Sex: Male

DRUGS (5)
  1. PREDNISONE [Suspect]
     Active Substance: PREDNISONE
     Indication: Warm autoimmune haemolytic anaemia
  2. BORTEZOMIB [Suspect]
     Active Substance: BORTEZOMIB
     Indication: Warm autoimmune haemolytic anaemia
     Dosage: 1.5 MILLIGRAM/SQ. METER, QW
  3. DARATUMUMAB [Suspect]
     Active Substance: DARATUMUMAB
     Indication: Warm autoimmune haemolytic anaemia
     Dosage: 16 MILLIGRAM/KILOGRAM, QW
  4. RITUXIMAB [Suspect]
     Active Substance: RITUXIMAB
     Indication: Warm autoimmune haemolytic anaemia
  5. IBRUTINIB [Suspect]
     Active Substance: IBRUTINIB
     Indication: Warm autoimmune haemolytic anaemia

REACTIONS (3)
  - Drug ineffective for unapproved indication [Unknown]
  - Off label use [Unknown]
  - Nausea [Unknown]
